FAERS Safety Report 23709173 (Version 4)
Quarter: 2024Q3

REPORT INFORMATION
  Report Type: Report from Study
  Country: MX (occurrence: None)
  Receive Date: 20240404
  Receipt Date: 20240701
  Transmission Date: 20241017
  Serious: Yes (Other)
  Sender: ASTRAZENECA
  Company Number: 2024A040181

PATIENT
  Age: 863 Month
  Sex: Female
  Weight: 102 kg

DRUGS (2)
  1. DAPAGLIFLOZIN [Suspect]
     Active Substance: DAPAGLIFLOZIN
     Indication: Cardiac failure
     Route: 048
     Dates: start: 20240101
  2. ALBUTEROL [Concomitant]
     Active Substance: ALBUTEROL

REACTIONS (12)
  - Thrombosis [Recovering/Resolving]
  - Coagulopathy [Recovering/Resolving]
  - Angina unstable [Recovered/Resolved]
  - Illness [Recovering/Resolving]
  - Lip dry [Recovered/Resolved]
  - Feeling hot [Not Recovered/Not Resolved]
  - Bone pain [Recovering/Resolving]
  - Pain in extremity [Not Recovered/Not Resolved]
  - Drug ineffective [Not Recovered/Not Resolved]
  - Peripheral swelling [Recovering/Resolving]
  - Headache [Recovering/Resolving]
  - Pain [Recovering/Resolving]

NARRATIVE: CASE EVENT DATE: 20240101
